FAERS Safety Report 11301182 (Version 3)
Quarter: 2015Q3

REPORT INFORMATION
  Report Type: Spontaneous
  Country: US (occurrence: None)
  Receive Date: 20150722
  Receipt Date: 20150803
  Transmission Date: 20151125
  Serious: Yes (Hospitalization)
  Sender: FDA-Public Use
  Company Number: 150277

PATIENT
  Age: 59 Year
  Sex: Female
  Weight: 64.41 kg

DRUGS (3)
  1. PEG-3350, SODIUM CHLORIDE, SODIUM BICARBONATE AND POTASSIUM CHLORIDE FOR ORAL SOLUTION [Suspect]
     Active Substance: POLYETHYLENE GLYCOL 3350\POTASSIUM CHLORIDE\SODIUM BICARBONATE\SODIUM CHLORIDE
     Indication: OFF LABEL USE
     Route: 048
     Dates: start: 20150714, end: 20150714
  2. LEVOTHYROXINE. [Concomitant]
     Active Substance: LEVOTHYROXINE
  3. LORAZEPAM. [Concomitant]
     Active Substance: LORAZEPAM

REACTIONS (3)
  - No therapeutic response [None]
  - Abdominal distension [None]
  - Faecaloma [None]

NARRATIVE: CASE EVENT DATE: 20150714
